FAERS Safety Report 8158021-1 (Version None)
Quarter: 2012Q1

REPORT INFORMATION
  Report Type: 
  Country: None (occurrence: None)
  Receive Date: 20120222
  Receipt Date: 20120214
  Transmission Date: 20120608
  Serious: Yes (Disabling, Other)
  Sender: FDA-Public Use
  Company Number: PHHY2011BR109159

PATIENT
  Age: 61 Year
  Sex: Male

DRUGS (4)
  1. TEGRETOL [Suspect]
     Indication: TRIGEMINAL NEURALGIA
     Dosage: 0.5 DF, TID, HALF TABLET EVERY 8 HOURS
  2. PROPRANOLOL [Concomitant]
     Indication: HYPERTENSION
     Dosage: 1 DF
  3. TEGRETOL [Suspect]
     Dosage: 200 MG, UNK
  4. QUISABRE [Concomitant]
     Indication: MULTIPLE SCLEROSIS
     Dosage: 1 DF,
     Route: 042

REACTIONS (5)
  - PAIN [None]
  - PARALYSIS [None]
  - MULTIPLE SCLEROSIS [None]
  - HYPOKINESIA [None]
  - SENSATION OF HEAVINESS [None]
